FAERS Safety Report 7784348-9 (Version None)
Quarter: 2011Q3

REPORT INFORMATION
  Report Type: 
  Country: None (occurrence: None)
  Receive Date: 20110928
  Receipt Date: 20110920
  Transmission Date: 20111222
  Serious: Yes (Hospitalization)
  Sender: FDA-Public Use
  Company Number: PHEH2011US04804

PATIENT
  Sex: Female

DRUGS (12)
  1. EXJADE [Suspect]
     Dosage: 250 MG, BID
     Route: 048
  2. RED BLOOD CELLS, CONCENTRATED [Concomitant]
     Dosage: 2 U, UNK
  3. BUMETANIDE [Concomitant]
     Dosage: 1 MG, UNK
     Route: 048
  4. BUMEX [Concomitant]
  5. HYDROXYZINE [Concomitant]
     Dosage: 25 MG, BID
  6. PREDNISONE [Concomitant]
     Dosage: 10 MG, UNK
     Route: 048
  7. CIPROFLOXACIN [Concomitant]
  8. DIFLUCAN [Concomitant]
     Dosage: 100 MG, UNK
     Route: 048
  9. DIGOXIN [Concomitant]
     Dosage: 250 UG, UNK
     Route: 048
  10. COMPAZINE [Concomitant]
     Dosage: 10 MG, QID
     Route: 048
  11. ACYCLOVIR [Concomitant]
     Dosage: 400 MG, UNK
     Route: 048
  12. KLOR-CON [Concomitant]
     Dosage: 20 MEQ, UNK
     Route: 048

REACTIONS (40)
  - EYELID OEDEMA [None]
  - GLOMERULAR FILTRATION RATE DECREASED [None]
  - HYPOTENSION [None]
  - PROTEIN TOTAL DECREASED [None]
  - HERPES ZOSTER [None]
  - ASPARTATE AMINOTRANSFERASE INCREASED [None]
  - BLOOD ALKALINE PHOSPHATASE INCREASED [None]
  - NAUSEA [None]
  - DYSPNOEA [None]
  - OXYGEN SATURATION DECREASED [None]
  - ERYTHEMA OF EYELID [None]
  - GASTRITIS [None]
  - BLOOD ALBUMIN DECREASED [None]
  - BASOPHIL COUNT INCREASED [None]
  - OESOPHAGITIS [None]
  - COUGH [None]
  - UNDERWEIGHT [None]
  - SPLENOMEGALY [None]
  - FATIGUE [None]
  - BLOOD SODIUM DECREASED [None]
  - ALANINE AMINOTRANSFERASE INCREASED [None]
  - NEUTROPHIL COUNT INCREASED [None]
  - LYMPHOCYTE COUNT DECREASED [None]
  - BLOOD GLUCOSE INCREASED [None]
  - EOSINOPHIL COUNT [None]
  - FEELING ABNORMAL [None]
  - ASTHENIA [None]
  - BLOOD CREATININE INCREASED [None]
  - HAEMOGLOBIN DECREASED [None]
  - HYPOPHAGIA [None]
  - ABDOMINAL PAIN [None]
  - VOMITING [None]
  - CHEST X-RAY ABNORMAL [None]
  - HAEMATOCRIT DECREASED [None]
  - PLATELET COUNT DECREASED [None]
  - PNEUMONIA [None]
  - RENAL FAILURE [None]
  - BLOOD LACTATE DEHYDROGENASE INCREASED [None]
  - DYSPNOEA EXERTIONAL [None]
  - INFLAMMATION [None]
